FAERS Safety Report 24282587 (Version 1)
Quarter: 2024Q3

REPORT INFORMATION
  Report Type: Spontaneous
  Country: US (occurrence: US)
  Receive Date: 20240904
  Receipt Date: 20240904
  Transmission Date: 20241016
  Serious: No
  Sender: IPSEN
  Company Number: US-IPSEN Group, Research and Development-2024-17289

PATIENT
  Age: 76 Year
  Sex: Female
  Weight: 56.69 kg

DRUGS (13)
  1. ONIVYDE [Suspect]
     Active Substance: IRINOTECAN HYDROCHLORIDE
     Indication: Pancreatic carcinoma
     Dosage: 1 VIAL (SINGLE DOSE)
     Route: 042
  2. FLUOROURACIL [Concomitant]
     Active Substance: FLUOROURACIL
     Dosage: 24 HR PUMP
  3. QUERCISORB [Concomitant]
  4. BERBERINE [Concomitant]
     Active Substance: BERBERINE
  5. VITAMIN C [Concomitant]
     Active Substance: ASCORBIC ACID
  6. VITAMIN D NOS [Concomitant]
     Active Substance: CHOLECALCIFEROL\ERGOCALCIFEROL
  7. VITAMIN K [Concomitant]
     Active Substance: PHYTONADIONE
  8. HERBALS [Concomitant]
     Active Substance: HERBALS
  9. BROCCOLI [Concomitant]
     Active Substance: BROCCOLI
     Dosage: BROCCO SUPPORT
  10. PECTASOL C [Concomitant]
  11. NALTREXONE [Concomitant]
     Active Substance: NALTREXONE
     Dosage: LOW DOSE
  12. ALPHA LIPOIC ACID [Concomitant]
     Active Substance: .ALPHA.-LIPOIC ACID
     Dosage: LOW DOSE
  13. VISCUM ALBUM FRUITING TOP [Concomitant]
     Active Substance: VISCUM ALBUM FRUITING TOP
     Dosage: LOW DOSE
     Route: 050

REACTIONS (5)
  - COVID-19 [Not Recovered/Not Resolved]
  - Urinary tract infection [Not Recovered/Not Resolved]
  - Hypoaesthesia [Not Recovered/Not Resolved]
  - Nausea [Not Recovered/Not Resolved]
  - Constipation [Not Recovered/Not Resolved]

NARRATIVE: CASE EVENT DATE: 20240812
